FAERS Safety Report 20700750 (Version 1)
Quarter: 2022Q2

REPORT INFORMATION
  Report Type: Spontaneous
  Country: US (occurrence: None)
  Receive Date: 20220411
  Receipt Date: 20220411
  Transmission Date: 20220721
  Serious: Yes (Hospitalization)
  Sender: FDA-Public Use
  Company Number: None

PATIENT
  Age: 64 Year
  Sex: Female
  Weight: 64.86 kg

DRUGS (4)
  1. LEVOTHYROXINE\LIOTHYRONINE [Suspect]
     Active Substance: LEVOTHYROXINE\LIOTHYRONINE
     Indication: Thyroid cancer
     Dosage: 1 CAPSULE 1X BY MOUTH
     Route: 048
     Dates: start: 20210225
  2. LEVOTHYROXINE\LIOTHYRONINE [Suspect]
     Active Substance: LEVOTHYROXINE\LIOTHYRONINE
  3. Hydrochlotothiazide [Concomitant]
  4. ESCITALOPRAM [Concomitant]
     Active Substance: ESCITALOPRAM OXALATE

REACTIONS (5)
  - Mental impairment [None]
  - Ocular hyperaemia [None]
  - Hypertension [None]
  - Blood thyroid stimulating hormone increased [None]
  - Malaise [None]

NARRATIVE: CASE EVENT DATE: 20220201
